FAERS Safety Report 5836020-X (Version None)
Quarter: 2008Q3

REPORT INFORMATION
  Report Type: 
  Country: None (occurrence: None)
  Receive Date: 20080806
  Receipt Date: 20080722
  Transmission Date: 20090109
  Serious: Yes (Hospitalization, Other)
  Sender: FDA-Public Use
  Company Number: BR-GENENTECH-263364

PATIENT
  Age: 53 Year
  Sex: Female

DRUGS (7)
  1. MABTHERA [Suspect]
     Indication: ANTIPHOSPHOLIPID SYNDROME
     Dosage: UNK UNK, UNKNOWN
     Dates: start: 20080505, end: 20080616
  2. DANAZOL [Suspect]
     Indication: PLATELET COUNT DECREASED
     Dosage: 600 MG, UNK
     Dates: start: 20080401, end: 20080520
  3. DANAZOL [Suspect]
     Dosage: 200 MG, UNK
     Dates: start: 20080401, end: 20080520
  4. CORTISONE [Suspect]
     Indication: ANTIPHOSPHOLIPID SYNDROME
     Dosage: 15 MG, UNK
  5. FRONTAL [Concomitant]
     Indication: DRUG USE FOR UNKNOWN INDICATION
  6. STILNOX [Concomitant]
     Indication: DRUG USE FOR UNKNOWN INDICATION
  7. WARFARIN SODIUM [Concomitant]
     Indication: DRUG USE FOR UNKNOWN INDICATION

REACTIONS (1)
  - HEPATITIS [None]
